FAERS Safety Report 19709668 (Version 5)
Quarter: 2023Q1

REPORT INFORMATION
  Report Type: Spontaneous
  Country: CA (occurrence: None)
  Receive Date: 20210817
  Receipt Date: 20230302
  Transmission Date: 20230417
  Serious: Yes (Hospitalization, Other)
  Sender: FDA-Public Use
  Company Number: 2021A673900

PATIENT
  Age: 47 Year
  Sex: Female

DRUGS (213)
  1. QUETIAPINE [Interacting]
     Active Substance: QUETIAPINE
     Indication: Major depression
     Route: 048
  2. QUETIAPINE [Interacting]
     Active Substance: QUETIAPINE
     Indication: Major depression
  3. QUETIAPINE [Interacting]
     Active Substance: QUETIAPINE
     Indication: Major depression
     Dosage: 100.0MG UNKNOWN
     Route: 048
  4. QUETIAPINE [Interacting]
     Active Substance: QUETIAPINE
     Indication: Major depression
     Dosage: 100.0MG UNKNOWN
     Route: 048
  5. QUETIAPINE [Interacting]
     Active Substance: QUETIAPINE
     Indication: Major depression
     Dosage: DOSE UNKNOWN UNKNOWN
     Route: 048
  6. QUETIAPINE [Interacting]
     Active Substance: QUETIAPINE
     Indication: Major depression
     Dosage: DOSE UNKNOWN UNKNOWN
     Route: 048
  7. QUETIAPINE [Interacting]
     Active Substance: QUETIAPINE
     Indication: Major depression
     Dosage: UNKNOWN
  8. QUETIAPINE [Interacting]
     Active Substance: QUETIAPINE
     Indication: Major depression
     Dosage: UNKNOWN
  9. QUETIAPINE [Interacting]
     Active Substance: QUETIAPINE
     Indication: Major depression
     Dosage: 50.0MG UNKNOWN
     Route: 048
  10. QUETIAPINE [Interacting]
     Active Substance: QUETIAPINE
     Indication: Major depression
     Dosage: UNKNOWN
  11. QUETIAPINE [Interacting]
     Active Substance: QUETIAPINE
     Indication: Major depression
     Dosage: UNKNOWN
     Route: 048
  12. QUETIAPINE [Interacting]
     Active Substance: QUETIAPINE
     Indication: Major depression
     Dosage: UNKNOWN
  13. QUETIAPINE [Interacting]
     Active Substance: QUETIAPINE
     Indication: Major depression
     Dosage: UNKNOWN
     Route: 048
  14. CYCLOBENZAPRINE [Interacting]
     Active Substance: CYCLOBENZAPRINE
     Indication: Pain
     Route: 048
  15. CYCLOBENZAPRINE [Interacting]
     Active Substance: CYCLOBENZAPRINE
     Indication: Scoliosis
     Route: 048
  16. CYCLOBENZAPRINE [Interacting]
     Active Substance: CYCLOBENZAPRINE
     Indication: Pain
     Route: 048
  17. CYCLOBENZAPRINE [Interacting]
     Active Substance: CYCLOBENZAPRINE
     Indication: Scoliosis
     Route: 048
  18. CYCLOBENZAPRINE [Interacting]
     Active Substance: CYCLOBENZAPRINE
     Indication: Pain
     Route: 048
  19. CYCLOBENZAPRINE [Interacting]
     Active Substance: CYCLOBENZAPRINE
     Indication: Scoliosis
     Route: 048
  20. CYCLOBENZAPRINE [Interacting]
     Active Substance: CYCLOBENZAPRINE
     Indication: Pain
     Route: 048
  21. CYCLOBENZAPRINE [Interacting]
     Active Substance: CYCLOBENZAPRINE
     Indication: Scoliosis
     Route: 048
  22. DIVALPROEX SODIUM [Interacting]
     Active Substance: DIVALPROEX SODIUM
     Indication: Affective disorder
     Route: 048
  23. DIVALPROEX SODIUM [Interacting]
     Active Substance: DIVALPROEX SODIUM
     Indication: Affective disorder
     Route: 048
  24. DIVALPROEX SODIUM [Interacting]
     Active Substance: DIVALPROEX SODIUM
     Indication: Affective disorder
     Route: 048
  25. DOXEPIN [Interacting]
     Active Substance: DOXEPIN
     Indication: Major depression
     Route: 048
  26. DOXEPIN [Interacting]
     Active Substance: DOXEPIN
     Indication: Product used for unknown indication
     Route: 048
  27. DOXEPIN [Interacting]
     Active Substance: DOXEPIN
     Indication: Major depression
     Route: 048
  28. DOXEPIN [Interacting]
     Active Substance: DOXEPIN
     Indication: Product used for unknown indication
     Route: 048
  29. DOXEPIN [Interacting]
     Active Substance: DOXEPIN
     Indication: Major depression
     Route: 048
  30. DOXEPIN [Interacting]
     Active Substance: DOXEPIN
     Indication: Product used for unknown indication
     Route: 048
  31. DOXEPIN [Interacting]
     Active Substance: DOXEPIN
     Indication: Major depression
     Route: 048
  32. DOXEPIN [Interacting]
     Active Substance: DOXEPIN
     Indication: Product used for unknown indication
     Route: 048
  33. DOXEPIN [Interacting]
     Active Substance: DOXEPIN
     Indication: Major depression
     Dosage: 150.0MG UNKNOWN
     Route: 048
  34. DOXEPIN [Interacting]
     Active Substance: DOXEPIN
     Indication: Product used for unknown indication
     Dosage: 150.0MG UNKNOWN
     Route: 048
  35. DOXEPIN [Interacting]
     Active Substance: DOXEPIN
     Indication: Major depression
     Dosage: 150.0MG UNKNOWN
     Route: 048
  36. DOXEPIN [Interacting]
     Active Substance: DOXEPIN
     Indication: Product used for unknown indication
     Dosage: 150.0MG UNKNOWN
     Route: 048
  37. DOXEPIN [Interacting]
     Active Substance: DOXEPIN
     Indication: Major depression
     Dosage: 100.0MG UNKNOWN
     Route: 048
  38. DOXEPIN [Interacting]
     Active Substance: DOXEPIN
     Indication: Product used for unknown indication
     Dosage: 100.0MG UNKNOWN
     Route: 048
  39. DOXEPIN [Interacting]
     Active Substance: DOXEPIN
     Indication: Major depression
     Dosage: UNKNOWN
     Route: 048
  40. DOXEPIN [Interacting]
     Active Substance: DOXEPIN
     Indication: Product used for unknown indication
     Dosage: UNKNOWN
     Route: 048
  41. DOXEPIN [Interacting]
     Active Substance: DOXEPIN
     Indication: Major depression
     Dosage: 100.0MG UNKNOWN
     Route: 048
  42. DOXEPIN [Interacting]
     Active Substance: DOXEPIN
     Indication: Product used for unknown indication
     Dosage: 100.0MG UNKNOWN
     Route: 048
  43. DOXEPIN [Interacting]
     Active Substance: DOXEPIN
     Indication: Major depression
     Dosage: 150.0MG UNKNOWN
  44. DOXEPIN [Interacting]
     Active Substance: DOXEPIN
     Indication: Product used for unknown indication
     Dosage: 150.0MG UNKNOWN
  45. DOXEPIN [Interacting]
     Active Substance: DOXEPIN
     Indication: Major depression
     Dosage: 50.0MG UNKNOWN
     Route: 048
  46. DOXEPIN [Interacting]
     Active Substance: DOXEPIN
     Indication: Product used for unknown indication
     Dosage: 50.0MG UNKNOWN
     Route: 048
  47. DOXEPIN [Interacting]
     Active Substance: DOXEPIN
     Indication: Major depression
     Dosage: 100.0MG UNKNOWN
     Route: 048
  48. DOXEPIN [Interacting]
     Active Substance: DOXEPIN
     Indication: Product used for unknown indication
     Dosage: 100.0MG UNKNOWN
     Route: 048
  49. DOXEPIN [Interacting]
     Active Substance: DOXEPIN
     Indication: Major depression
     Dosage: 150.0MG UNKNOWN
     Route: 048
  50. DOXEPIN [Interacting]
     Active Substance: DOXEPIN
     Indication: Product used for unknown indication
     Dosage: 150.0MG UNKNOWN
     Route: 048
  51. DOXEPIN [Interacting]
     Active Substance: DOXEPIN
     Indication: Major depression
     Dosage: 50.0MG UNKNOWN
     Route: 048
  52. DOXEPIN [Interacting]
     Active Substance: DOXEPIN
     Indication: Product used for unknown indication
     Dosage: 50.0MG UNKNOWN
     Route: 048
  53. DOXEPIN [Interacting]
     Active Substance: DOXEPIN
     Indication: Major depression
     Dosage: 150.0MG UNKNOWN
     Route: 048
  54. DOXEPIN [Interacting]
     Active Substance: DOXEPIN
     Indication: Product used for unknown indication
     Dosage: 150.0MG UNKNOWN
     Route: 048
  55. DOXEPIN [Interacting]
     Active Substance: DOXEPIN
     Indication: Major depression
     Dosage: 50.0MG UNKNOWN
     Route: 048
  56. DOXEPIN [Interacting]
     Active Substance: DOXEPIN
     Indication: Product used for unknown indication
     Dosage: 50.0MG UNKNOWN
     Route: 048
  57. DOXEPIN [Interacting]
     Active Substance: DOXEPIN
     Indication: Major depression
     Dosage: 150.0MG UNKNOWN
     Route: 048
  58. DOXEPIN [Interacting]
     Active Substance: DOXEPIN
     Indication: Product used for unknown indication
     Dosage: 150.0MG UNKNOWN
     Route: 048
  59. DOXEPIN [Interacting]
     Active Substance: DOXEPIN
     Indication: Major depression
     Dosage: 150.0MG UNKNOWN
     Route: 048
  60. DOXEPIN [Interacting]
     Active Substance: DOXEPIN
     Indication: Product used for unknown indication
     Dosage: 150.0MG UNKNOWN
     Route: 048
  61. DOXEPIN [Interacting]
     Active Substance: DOXEPIN
     Indication: Major depression
     Dosage: 100.0MG UNKNOWN
     Route: 048
  62. DOXEPIN [Interacting]
     Active Substance: DOXEPIN
     Indication: Product used for unknown indication
     Dosage: 100.0MG UNKNOWN
     Route: 048
  63. FLUOXETINE HYDROCHLORIDE [Interacting]
     Active Substance: FLUOXETINE HYDROCHLORIDE
     Indication: Major depression
     Route: 048
  64. FLUOXETINE HYDROCHLORIDE [Interacting]
     Active Substance: FLUOXETINE HYDROCHLORIDE
     Indication: Major depression
     Route: 048
  65. FLUOXETINE HYDROCHLORIDE [Interacting]
     Active Substance: FLUOXETINE HYDROCHLORIDE
     Indication: Major depression
     Route: 048
  66. FLUOXETINE HYDROCHLORIDE [Interacting]
     Active Substance: FLUOXETINE HYDROCHLORIDE
     Indication: Major depression
     Dosage: 80.0MG UNKNOWN
     Route: 048
  67. FLUOXETINE HYDROCHLORIDE [Interacting]
     Active Substance: FLUOXETINE HYDROCHLORIDE
     Indication: Major depression
     Dosage: 80.0MG UNKNOWN
     Route: 048
  68. FLUOXETINE HYDROCHLORIDE [Interacting]
     Active Substance: FLUOXETINE HYDROCHLORIDE
     Indication: Major depression
     Dosage: 60.0MG UNKNOWN
     Route: 048
  69. FLUOXETINE HYDROCHLORIDE [Interacting]
     Active Substance: FLUOXETINE HYDROCHLORIDE
     Indication: Major depression
     Dosage: 40.0MG UNKNOWN
     Route: 048
  70. FLUOXETINE HYDROCHLORIDE [Interacting]
     Active Substance: FLUOXETINE HYDROCHLORIDE
     Indication: Major depression
     Dosage: 60.0MG UNKNOWN
     Route: 048
  71. FLUOXETINE HYDROCHLORIDE [Interacting]
     Active Substance: FLUOXETINE HYDROCHLORIDE
     Indication: Major depression
     Dosage: 20.0MG UNKNOWN
     Route: 048
  72. FLUOXETINE HYDROCHLORIDE [Interacting]
     Active Substance: FLUOXETINE HYDROCHLORIDE
     Indication: Major depression
     Dosage: UNKNOWN
     Route: 048
  73. FLUOXETINE HYDROCHLORIDE [Interacting]
     Active Substance: FLUOXETINE HYDROCHLORIDE
     Indication: Major depression
     Dosage: 40.0MG UNKNOWN
     Route: 048
  74. FLUOXETINE HYDROCHLORIDE [Interacting]
     Active Substance: FLUOXETINE HYDROCHLORIDE
     Indication: Major depression
     Dosage: 60.0MG UNKNOWN
     Route: 048
  75. FLUOXETINE HYDROCHLORIDE [Interacting]
     Active Substance: FLUOXETINE HYDROCHLORIDE
     Indication: Major depression
     Dosage: 60.0MG UNKNOWN
     Route: 048
  76. FLUOXETINE HYDROCHLORIDE [Interacting]
     Active Substance: FLUOXETINE HYDROCHLORIDE
     Indication: Major depression
     Dosage: 40.0MG UNKNOWN
     Route: 048
  77. FLUOXETINE HYDROCHLORIDE [Interacting]
     Active Substance: FLUOXETINE HYDROCHLORIDE
     Indication: Major depression
     Dosage: 40.0MG UNKNOWN
     Route: 048
  78. FLUOXETINE HYDROCHLORIDE [Interacting]
     Active Substance: FLUOXETINE HYDROCHLORIDE
     Indication: Major depression
     Dosage: 40.0MG UNKNOWN
     Route: 048
  79. FLUOXETINE HYDROCHLORIDE [Interacting]
     Active Substance: FLUOXETINE HYDROCHLORIDE
     Indication: Major depression
     Dosage: 60.0MG UNKNOWN
     Route: 048
  80. FLUOXETINE HYDROCHLORIDE [Interacting]
     Active Substance: FLUOXETINE HYDROCHLORIDE
     Indication: Major depression
     Dosage: 60.0MG UNKNOWN
     Route: 048
  81. FLUOXETINE HYDROCHLORIDE [Interacting]
     Active Substance: FLUOXETINE HYDROCHLORIDE
     Indication: Major depression
     Dosage: 20.0MG UNKNOWN
     Route: 048
  82. FLUOXETINE HYDROCHLORIDE [Interacting]
     Active Substance: FLUOXETINE HYDROCHLORIDE
     Indication: Major depression
     Dosage: 60.0MG UNKNOWN
     Route: 048
  83. FLUOXETINE HYDROCHLORIDE [Interacting]
     Active Substance: FLUOXETINE HYDROCHLORIDE
     Indication: Major depression
     Dosage: 80.0MG UNKNOWN
     Route: 048
  84. FLUOXETINE HYDROCHLORIDE [Interacting]
     Active Substance: FLUOXETINE HYDROCHLORIDE
     Indication: Major depression
     Dosage: UNKNOWN
     Route: 048
  85. FLUOXETINE HYDROCHLORIDE [Interacting]
     Active Substance: FLUOXETINE HYDROCHLORIDE
     Indication: Major depression
     Dosage: UNKNOWN
     Route: 048
  86. FLUOXETINE HYDROCHLORIDE [Interacting]
     Active Substance: FLUOXETINE HYDROCHLORIDE
     Indication: Major depression
     Dosage: 20.0MG UNKNOWN
     Route: 048
  87. FLUOXETINE HYDROCHLORIDE [Interacting]
     Active Substance: FLUOXETINE HYDROCHLORIDE
     Indication: Major depression
     Dosage: 40.0MG UNKNOWN
     Route: 048
  88. FLUOXETINE HYDROCHLORIDE [Interacting]
     Active Substance: FLUOXETINE HYDROCHLORIDE
     Indication: Major depression
     Dosage: 20.0MG UNKNOWN
     Route: 048
  89. FLUOXETINE HYDROCHLORIDE [Interacting]
     Active Substance: FLUOXETINE HYDROCHLORIDE
     Indication: Major depression
     Dosage: 60.0MG UNKNOWN
     Route: 048
  90. FLUOXETINE HYDROCHLORIDE [Interacting]
     Active Substance: FLUOXETINE HYDROCHLORIDE
     Indication: Major depression
     Dosage: 80.0MG UNKNOWN
     Route: 048
  91. FLUOXETINE HYDROCHLORIDE [Interacting]
     Active Substance: FLUOXETINE HYDROCHLORIDE
     Indication: Major depression
     Dosage: 80.0MG UNKNOWN
     Route: 048
  92. GABAPENTIN [Interacting]
     Active Substance: GABAPENTIN
     Indication: Pain
     Route: 048
  93. GABAPENTIN [Interacting]
     Active Substance: GABAPENTIN
     Indication: Scoliosis
     Route: 048
  94. GABAPENTIN [Interacting]
     Active Substance: GABAPENTIN
     Indication: Pain
  95. GABAPENTIN [Interacting]
     Active Substance: GABAPENTIN
     Indication: Scoliosis
  96. GABAPENTIN [Interacting]
     Active Substance: GABAPENTIN
     Indication: Pain
  97. GABAPENTIN [Interacting]
     Active Substance: GABAPENTIN
     Indication: Scoliosis
  98. GABAPENTIN [Interacting]
     Active Substance: GABAPENTIN
     Indication: Pain
     Route: 048
  99. GABAPENTIN [Interacting]
     Active Substance: GABAPENTIN
     Indication: Scoliosis
     Route: 048
  100. GABAPENTIN [Interacting]
     Active Substance: GABAPENTIN
     Indication: Pain
     Dosage: 600.0MG UNKNOWN
     Route: 048
  101. GABAPENTIN [Interacting]
     Active Substance: GABAPENTIN
     Indication: Scoliosis
     Dosage: 600.0MG UNKNOWN
     Route: 048
  102. GABAPENTIN [Interacting]
     Active Substance: GABAPENTIN
     Indication: Pain
     Dosage: 600.0MG UNKNOWN
     Route: 048
  103. GABAPENTIN [Interacting]
     Active Substance: GABAPENTIN
     Indication: Scoliosis
     Dosage: 600.0MG UNKNOWN
     Route: 048
  104. GABAPENTIN [Interacting]
     Active Substance: GABAPENTIN
     Indication: Pain
     Dosage: 600.0MG UNKNOWN
     Route: 048
  105. GABAPENTIN [Interacting]
     Active Substance: GABAPENTIN
     Indication: Scoliosis
     Dosage: 600.0MG UNKNOWN
     Route: 048
  106. GABAPENTIN [Interacting]
     Active Substance: GABAPENTIN
     Indication: Pain
     Dosage: UNKNOWN
  107. GABAPENTIN [Interacting]
     Active Substance: GABAPENTIN
     Indication: Scoliosis
     Dosage: UNKNOWN
  108. GABAPENTIN [Interacting]
     Active Substance: GABAPENTIN
     Indication: Pain
     Dosage: 600.0MG UNKNOWN
     Route: 048
  109. GABAPENTIN [Interacting]
     Active Substance: GABAPENTIN
     Indication: Scoliosis
     Dosage: 600.0MG UNKNOWN
     Route: 048
  110. GABAPENTIN [Interacting]
     Active Substance: GABAPENTIN
     Indication: Pain
     Dosage: 600.0MG UNKNOWN
     Route: 048
  111. GABAPENTIN [Interacting]
     Active Substance: GABAPENTIN
     Indication: Scoliosis
     Dosage: 600.0MG UNKNOWN
     Route: 048
  112. LORAZEPAM [Interacting]
     Active Substance: LORAZEPAM
     Indication: Withdrawal syndrome
     Route: 048
  113. LORAZEPAM [Interacting]
     Active Substance: LORAZEPAM
     Indication: Anxiety
     Route: 048
  114. LORAZEPAM [Interacting]
     Active Substance: LORAZEPAM
     Indication: Withdrawal syndrome
  115. LORAZEPAM [Interacting]
     Active Substance: LORAZEPAM
     Indication: Anxiety
  116. LORAZEPAM [Interacting]
     Active Substance: LORAZEPAM
     Indication: Withdrawal syndrome
  117. LORAZEPAM [Interacting]
     Active Substance: LORAZEPAM
     Indication: Anxiety
  118. LORAZEPAM [Interacting]
     Active Substance: LORAZEPAM
     Indication: Withdrawal syndrome
     Route: 048
  119. LORAZEPAM [Interacting]
     Active Substance: LORAZEPAM
     Indication: Anxiety
     Route: 048
  120. LORAZEPAM [Interacting]
     Active Substance: LORAZEPAM
     Indication: Withdrawal syndrome
     Dosage: 3.0MG UNKNOWN
  121. LORAZEPAM [Interacting]
     Active Substance: LORAZEPAM
     Indication: Anxiety
     Dosage: 3.0MG UNKNOWN
  122. LORAZEPAM [Interacting]
     Active Substance: LORAZEPAM
     Indication: Withdrawal syndrome
     Dosage: 4.0MG UNKNOWN
  123. LORAZEPAM [Interacting]
     Active Substance: LORAZEPAM
     Indication: Anxiety
     Dosage: 4.0MG UNKNOWN
  124. LORAZEPAM [Interacting]
     Active Substance: LORAZEPAM
     Indication: Withdrawal syndrome
     Dosage: UNKNOWN
     Route: 048
  125. LORAZEPAM [Interacting]
     Active Substance: LORAZEPAM
     Indication: Anxiety
     Dosage: UNKNOWN
     Route: 048
  126. LORAZEPAM [Interacting]
     Active Substance: LORAZEPAM
     Indication: Withdrawal syndrome
     Dosage: 2.0MG UNKNOWN
  127. LORAZEPAM [Interacting]
     Active Substance: LORAZEPAM
     Indication: Anxiety
     Dosage: 2.0MG UNKNOWN
  128. LORAZEPAM [Interacting]
     Active Substance: LORAZEPAM
     Indication: Withdrawal syndrome
     Dosage: 5.0MG UNKNOWN
  129. LORAZEPAM [Interacting]
     Active Substance: LORAZEPAM
     Indication: Anxiety
     Dosage: 5.0MG UNKNOWN
  130. LORAZEPAM [Interacting]
     Active Substance: LORAZEPAM
     Indication: Withdrawal syndrome
     Dosage: 7.0MG UNKNOWN
  131. LORAZEPAM [Interacting]
     Active Substance: LORAZEPAM
     Indication: Anxiety
     Dosage: 7.0MG UNKNOWN
  132. LORAZEPAM [Interacting]
     Active Substance: LORAZEPAM
     Indication: Withdrawal syndrome
     Dosage: 6.0MG UNKNOWN
  133. LORAZEPAM [Interacting]
     Active Substance: LORAZEPAM
     Indication: Anxiety
     Dosage: 6.0MG UNKNOWN
  134. LORAZEPAM [Interacting]
     Active Substance: LORAZEPAM
     Indication: Withdrawal syndrome
     Dosage: UNKNOWN
     Route: 048
  135. LORAZEPAM [Interacting]
     Active Substance: LORAZEPAM
     Indication: Anxiety
     Dosage: UNKNOWN
     Route: 048
  136. LORAZEPAM [Interacting]
     Active Substance: LORAZEPAM
     Indication: Withdrawal syndrome
     Dosage: 1.0MG UNKNOWN
     Route: 048
  137. LORAZEPAM [Interacting]
     Active Substance: LORAZEPAM
     Indication: Anxiety
     Dosage: 1.0MG UNKNOWN
     Route: 048
  138. LORAZEPAM [Interacting]
     Active Substance: LORAZEPAM
     Indication: Withdrawal syndrome
     Dosage: 1.0MG UNKNOWN
     Route: 030
  139. LORAZEPAM [Interacting]
     Active Substance: LORAZEPAM
     Indication: Anxiety
     Dosage: 1.0MG UNKNOWN
     Route: 030
  140. LORAZEPAM [Interacting]
     Active Substance: LORAZEPAM
     Indication: Withdrawal syndrome
     Dosage: 7.0MG UNKNOWN
  141. LORAZEPAM [Interacting]
     Active Substance: LORAZEPAM
     Indication: Anxiety
     Dosage: 7.0MG UNKNOWN
  142. LORAZEPAM [Interacting]
     Active Substance: LORAZEPAM
     Indication: Withdrawal syndrome
     Dosage: 1.0MG UNKNOWN
     Route: 030
  143. LORAZEPAM [Interacting]
     Active Substance: LORAZEPAM
     Indication: Anxiety
     Dosage: 1.0MG UNKNOWN
     Route: 030
  144. LORAZEPAM [Interacting]
     Active Substance: LORAZEPAM
     Indication: Withdrawal syndrome
     Dosage: UNKNOWN
     Route: 048
  145. LORAZEPAM [Interacting]
     Active Substance: LORAZEPAM
     Indication: Anxiety
     Dosage: UNKNOWN
     Route: 048
  146. METHADONE [Interacting]
     Active Substance: METHADONE HYDROCHLORIDE
     Indication: Drug use disorder
     Route: 048
  147. METHADONE [Interacting]
     Active Substance: METHADONE HYDROCHLORIDE
     Indication: Drug use disorder
  148. METHADONE [Interacting]
     Active Substance: METHADONE HYDROCHLORIDE
     Indication: Drug use disorder
     Dosage: 40.0MG UNKNOWN
  149. METHADONE [Interacting]
     Active Substance: METHADONE HYDROCHLORIDE
     Indication: Drug use disorder
     Dosage: 75.0MG UNKNOWN
     Route: 048
  150. METHADONE [Interacting]
     Active Substance: METHADONE HYDROCHLORIDE
     Indication: Drug use disorder
     Dosage: 75.0MG UNKNOWN
     Route: 048
  151. METHADONE [Interacting]
     Active Substance: METHADONE HYDROCHLORIDE
     Indication: Drug use disorder
     Dosage: 75.0MG UNKNOWN
     Route: 048
  152. METHADONE [Interacting]
     Active Substance: METHADONE HYDROCHLORIDE
     Indication: Drug use disorder
     Dosage: 50.0MG UNKNOWN
  153. RISPERIDONE [Interacting]
     Active Substance: RISPERIDONE
     Indication: Affective disorder
     Route: 048
  154. RISPERIDONE [Interacting]
     Active Substance: RISPERIDONE
     Indication: Affective disorder
     Route: 048
  155. DIVALPROEX SODIUM [Suspect]
     Active Substance: DIVALPROEX SODIUM
     Indication: Mania
     Route: 048
  156. DIVALPROEX SODIUM [Suspect]
     Active Substance: DIVALPROEX SODIUM
     Indication: Affective disorder
     Route: 048
  157. DIVALPROEX SODIUM [Suspect]
     Active Substance: DIVALPROEX SODIUM
     Indication: Mania
     Route: 048
  158. DIVALPROEX SODIUM [Suspect]
     Active Substance: DIVALPROEX SODIUM
     Indication: Affective disorder
     Route: 048
  159. DIVALPROEX SODIUM [Suspect]
     Active Substance: DIVALPROEX SODIUM
     Indication: Mania
     Route: 048
  160. DIVALPROEX SODIUM [Suspect]
     Active Substance: DIVALPROEX SODIUM
     Indication: Affective disorder
     Route: 048
  161. DIVALPROEX SODIUM [Suspect]
     Active Substance: DIVALPROEX SODIUM
     Indication: Mania
     Route: 048
  162. DIVALPROEX SODIUM [Suspect]
     Active Substance: DIVALPROEX SODIUM
     Indication: Affective disorder
     Route: 048
  163. DIVALPROEX SODIUM [Suspect]
     Active Substance: DIVALPROEX SODIUM
     Indication: Mania
  164. DIVALPROEX SODIUM [Suspect]
     Active Substance: DIVALPROEX SODIUM
     Indication: Affective disorder
  165. DIVALPROEX SODIUM [Suspect]
     Active Substance: DIVALPROEX SODIUM
     Indication: Mania
     Route: 048
  166. DIVALPROEX SODIUM [Suspect]
     Active Substance: DIVALPROEX SODIUM
     Indication: Affective disorder
     Route: 048
  167. DIVALPROEX SODIUM [Suspect]
     Active Substance: DIVALPROEX SODIUM
     Indication: Mania
     Route: 048
  168. DIVALPROEX SODIUM [Suspect]
     Active Substance: DIVALPROEX SODIUM
     Indication: Affective disorder
     Route: 048
  169. DIVALPROEX SODIUM [Suspect]
     Active Substance: DIVALPROEX SODIUM
     Indication: Mania
     Route: 048
  170. DIVALPROEX SODIUM [Suspect]
     Active Substance: DIVALPROEX SODIUM
     Indication: Affective disorder
     Route: 048
  171. DIVALPROEX SODIUM [Suspect]
     Active Substance: DIVALPROEX SODIUM
     Indication: Mania
     Dosage: 250.0MG UNKNOWN
     Route: 048
  172. DIVALPROEX SODIUM [Suspect]
     Active Substance: DIVALPROEX SODIUM
     Indication: Affective disorder
     Dosage: 250.0MG UNKNOWN
     Route: 048
  173. DIVALPROEX SODIUM [Suspect]
     Active Substance: DIVALPROEX SODIUM
     Indication: Mania
     Dosage: 500.0MG UNKNOWN
     Route: 048
  174. DIVALPROEX SODIUM [Suspect]
     Active Substance: DIVALPROEX SODIUM
     Indication: Affective disorder
     Dosage: 500.0MG UNKNOWN
     Route: 048
  175. DIVALPROEX SODIUM [Suspect]
     Active Substance: DIVALPROEX SODIUM
     Indication: Mania
     Dosage: 500.0MG UNKNOWN
     Route: 048
  176. DIVALPROEX SODIUM [Suspect]
     Active Substance: DIVALPROEX SODIUM
     Indication: Affective disorder
     Dosage: 500.0MG UNKNOWN
     Route: 048
  177. DIVALPROEX SODIUM [Suspect]
     Active Substance: DIVALPROEX SODIUM
     Indication: Mania
     Dosage: UNKNOWN
     Route: 048
  178. DIVALPROEX SODIUM [Suspect]
     Active Substance: DIVALPROEX SODIUM
     Indication: Affective disorder
     Dosage: UNKNOWN
     Route: 048
  179. DIVALPROEX SODIUM [Suspect]
     Active Substance: DIVALPROEX SODIUM
     Indication: Mania
     Dosage: 250.0MG UNKNOWN
     Route: 048
  180. DIVALPROEX SODIUM [Suspect]
     Active Substance: DIVALPROEX SODIUM
     Indication: Affective disorder
     Dosage: 250.0MG UNKNOWN
     Route: 048
  181. DIVALPROEX SODIUM [Suspect]
     Active Substance: DIVALPROEX SODIUM
     Indication: Mania
     Dosage: UNKNOWN
     Route: 048
  182. DIVALPROEX SODIUM [Suspect]
     Active Substance: DIVALPROEX SODIUM
     Indication: Affective disorder
     Dosage: UNKNOWN
     Route: 048
  183. RISPERDAL [Suspect]
     Active Substance: RISPERIDONE
     Indication: Affective disorder
     Route: 048
  184. ATENOLOL [Concomitant]
     Active Substance: ATENOLOL
     Indication: Hypertension
     Route: 048
  185. ATENOLOL [Concomitant]
     Active Substance: ATENOLOL
     Indication: Hypertension
     Route: 065
  186. ATENOLOL [Concomitant]
     Active Substance: ATENOLOL
     Indication: Hypertension
     Route: 048
  187. ATENOLOL [Concomitant]
     Active Substance: ATENOLOL
     Indication: Hypertension
     Route: 048
  188. ATENOLOL [Concomitant]
     Active Substance: ATENOLOL
     Indication: Hypertension
     Route: 048
  189. ATENOLOL [Concomitant]
     Active Substance: ATENOLOL
     Indication: Hypertension
     Route: 048
  190. ATENOLOL [Concomitant]
     Active Substance: ATENOLOL
     Indication: Hypertension
  191. ATENOLOL [Concomitant]
     Active Substance: ATENOLOL
     Indication: Hypertension
  192. ESTRADIOL [Concomitant]
     Active Substance: ESTRADIOL
     Indication: Endometriosis
     Route: 048
  193. ESTRADIOL [Concomitant]
     Active Substance: ESTRADIOL
     Indication: Endometriosis
  194. FUROSEMIDE [Concomitant]
     Active Substance: FUROSEMIDE
     Indication: Oedema peripheral
     Dosage: 40.0MG AS REQUIRED
     Route: 048
  195. FUROSEMIDE [Concomitant]
     Active Substance: FUROSEMIDE
     Indication: Oedema peripheral
     Dosage: 40.0MG AS REQUIRED
     Route: 048
  196. FUROSEMIDE [Concomitant]
     Active Substance: FUROSEMIDE
     Indication: Oedema peripheral
     Dosage: AS REQUIRED
  197. NAPROXEN [Concomitant]
     Active Substance: NAPROXEN
     Indication: Pain
     Dosage: 500.0MG AS REQUIRED
     Route: 048
  198. NAPROXEN [Concomitant]
     Active Substance: NAPROXEN
     Indication: Pain
     Dosage: 500.0MG AS REQUIRED
     Route: 048
  199. NAPROXEN [Concomitant]
     Active Substance: NAPROXEN
     Indication: Pain
     Dosage: 500.0MG AS REQUIRED
     Route: 048
  200. NAPROXEN [Concomitant]
     Active Substance: NAPROXEN
     Indication: Pain
     Dosage: 500.0MG AS REQUIRED
     Route: 048
  201. NAPROXEN [Concomitant]
     Active Substance: NAPROXEN
     Indication: Pain
     Dosage: AS REQUIRED
  202. ALBUTEROL [Concomitant]
     Active Substance: ALBUTEROL
     Indication: Chronic obstructive pulmonary disease
     Dosage: 200.0UG AS REQUIRED
     Route: 055
  203. ALBUTEROL [Concomitant]
     Active Substance: ALBUTEROL
     Indication: Chronic obstructive pulmonary disease
     Dosage: 200.0UG UNKNOWN
  204. ALBUTEROL [Concomitant]
     Active Substance: ALBUTEROL
     Indication: Chronic obstructive pulmonary disease
     Dosage: 200.0UG UNKNOWN
  205. ALBUTEROL [Concomitant]
     Active Substance: ALBUTEROL
     Indication: Chronic obstructive pulmonary disease
     Dosage: UNKNOWN
  206. ALBUTEROL [Concomitant]
     Active Substance: ALBUTEROL
     Indication: Chronic obstructive pulmonary disease
     Dosage: 200.0UG UNKNOWN
  207. TIOTROPIUM [Concomitant]
     Active Substance: TIOTROPIUM
     Indication: Chronic obstructive pulmonary disease
     Dosage: 5.0UG AS REQUIRED
     Route: 055
  208. TIOTROPIUM [Concomitant]
     Active Substance: TIOTROPIUM
     Indication: Chronic obstructive pulmonary disease
     Dosage: 5.0UG AS REQUIRED
  209. TIOTROPIUM [Concomitant]
     Active Substance: TIOTROPIUM
     Indication: Chronic obstructive pulmonary disease
     Dosage: 5.0UG AS REQUIRED
  210. SPIRIVA [Concomitant]
     Active Substance: TIOTROPIUM BROMIDE MONOHYDRATE
  211. SPIRIVA [Concomitant]
     Active Substance: TIOTROPIUM BROMIDE MONOHYDRATE
     Dosage: 5.0MG UNKNOWN
  212. CLONIDINE [Concomitant]
     Active Substance: CLONIDINE
     Route: 065
  213. NALOXONE [Concomitant]
     Active Substance: NALOXONE

REACTIONS (5)
  - Drug interaction [Unknown]
  - Depressed level of consciousness [Unknown]
  - Respiratory depression [Unknown]
  - Toxicity to various agents [Unknown]
  - Off label use [Unknown]
